FAERS Safety Report 11891200 (Version 1)
Quarter: 2016Q1

REPORT INFORMATION
  Report Type: Spontaneous
  Country: US (occurrence: None)
  Receive Date: 20160105
  Receipt Date: 20160105
  Transmission Date: 20160526
  Serious: No
  Sender: FDA-Public Use
  Company Number: None

PATIENT

DRUGS (2)
  1. OXYMORPHONE HCL OXYMORPHONE IR [Suspect]
     Active Substance: OXYMORPHONE HYDROCHLORIDE
  2. OXYMORPHONE HCL OXYMORPHONE ER [Suspect]
     Active Substance: OXYMORPHONE HYDROCHLORIDE

REACTIONS (3)
  - Product formulation issue [None]
  - Drug dispensing error [None]
  - Incorrect product formulation administered [None]
